FAERS Safety Report 21849005 (Version 1)
Quarter: 2023Q1

REPORT INFORMATION
  Report Type: Spontaneous
  Country: US (occurrence: None)
  Receive Date: 20230110
  Receipt Date: 20230110
  Transmission Date: 20230417
  Serious: Yes (Other)
  Sender: FDA-Public Use
  Company Number: None

PATIENT
  Age: 41 Year
  Sex: Female

DRUGS (28)
  1. HUMIRA [Suspect]
     Active Substance: ADALIMUMAB
     Indication: Psoriasis
     Dosage: OTHER QUANTITY : 40 MG/0.4ML;?FREQUENCY : EVERY OTHER WEEK;?
     Route: 058
     Dates: start: 20201222
  2. HUMIRA [Suspect]
     Active Substance: ADALIMUMAB
     Dosage: OTHER QUANTITY : 1 PEN;?FREQUENCY : EVERY OTHER WEEK;?
     Route: 058
  3. ALPRAZOLAM [Concomitant]
     Active Substance: ALPRAZOLAM
  4. AMITRIPTYLINE [Concomitant]
     Active Substance: AMITRIPTYLINE
  5. AZITHROMYCIN [Concomitant]
     Active Substance: AZITHROMYCIN
  6. BETA-PHOS/AC [Concomitant]
  7. BUT/APAP/CAF [Concomitant]
  8. CLONAZEPAM [Concomitant]
     Active Substance: CLONAZEPAM
  9. CYCLOBENZAPAR [Concomitant]
  10. DEPO-MEDROL [Concomitant]
     Active Substance: METHYLPREDNISOLONE ACETATE
  11. DICYCLOMINE [Concomitant]
     Active Substance: DICYCLOMINE HYDROCHLORIDE
  12. FETZIMA [Concomitant]
     Active Substance: LEVOMILNACIPRAN HYDROCHLORIDE
  13. FOLIC ACID [Concomitant]
     Active Substance: FOLIC ACID
  14. ACETAMINOPHEN\HYDROCODONE [Concomitant]
     Active Substance: ACETAMINOPHEN\HYDROCODONE
  15. HYDROMET [Concomitant]
  16. LAMOTRIGINE [Concomitant]
     Active Substance: LAMOTRIGINE
  17. METHOCARBAMOL [Concomitant]
     Active Substance: METHOCARBAMOL
  18. METHOTREXATE [Concomitant]
     Active Substance: METHOTREXATE
  19. METHYLPREDNISOLONE [Concomitant]
     Active Substance: METHYLPREDNISOLONE
  20. METOPROL SUC [Concomitant]
  21. ONDANSETRON [Concomitant]
     Active Substance: ONDANSETRON
  22. OXYCODONE AND ACETAMINOPHEN [Concomitant]
     Active Substance: ACETAMINOPHEN\OXYCODONE HYDROCHLORIDE
  23. PANTOPRAZOLE [Concomitant]
     Active Substance: PANTOPRAZOLE
  24. PHENTERMINE [Concomitant]
     Active Substance: PHENTERMINE
  25. PROMETHAZINE [Concomitant]
     Active Substance: PROMETHAZINE HYDROCHLORIDE
  26. SUMATRIPTAN [Concomitant]
     Active Substance: SUMATRIPTAN
  27. TRAMADOL [Concomitant]
  28. ZOLPIDEM [Concomitant]
     Active Substance: ZOLPIDEM TARTRATE

REACTIONS (2)
  - Surgery [None]
  - Therapy cessation [None]

NARRATIVE: CASE EVENT DATE: 20221204
